FAERS Safety Report 7663385-9 (Version None)
Quarter: 2011Q3

REPORT INFORMATION
  Report Type: 
  Country: None (occurrence: None)
  Receive Date: 20110805
  Receipt Date: 20100816
  Transmission Date: 20111222
  Serious: No
  Sender: FDA-Public Use
  Company Number: US-ABBOTT-10P-163-0664221-00

PATIENT
  Sex: Female
  Weight: 65.83 kg

DRUGS (4)
  1. NIASPAN [Suspect]
     Indication: DYSLIPIDAEMIA
     Dosage: 500 MG DAILY AT BEDTIME
     Route: 048
     Dates: start: 20100616
  2. ASPIRIN [Concomitant]
     Indication: PRODUCT USED FOR UNKNOWN INDICATION
     Route: 048
  3. MEDICATION FOR GERD [Concomitant]
     Indication: GASTROOESOPHAGEAL REFLUX DISEASE
  4. THYROID MEDICATION [Concomitant]
     Indication: THYROID DISORDER
     Route: 048

REACTIONS (5)
  - ERYTHEMA [None]
  - PARAESTHESIA [None]
  - PRURITUS [None]
  - FLUSHING [None]
  - HOT FLUSH [None]
